FAERS Safety Report 4804140-4 (Version None)
Quarter: 2005Q4

REPORT INFORMATION
  Report Type: 
  Country: None (occurrence: None)
  Receive Date: 20051020
  Receipt Date: 20051007
  Transmission Date: 20060501
  Serious: Yes (Death)
  Sender: FDA-Public Use
  Company Number: DE-BRISTOL-MYERS SQUIBB COMPANY-13138052

PATIENT
  Age: 31 Year
  Sex: Female
  Weight: 74 kg

DRUGS (5)
  1. ABILIFY [Suspect]
     Dosage: INCREASED FROM 15 MG DAILY TO 20 MG DAILY ON 15-JUL-2005
     Route: 048
  2. RISPERDAL [Suspect]
     Route: 048
  3. CYMBALTA [Suspect]
     Route: 048
     Dates: start: 20050825
  4. DIAZEPAM [Concomitant]
     Route: 048
  5. AMITRIPTYLINE HCL [Concomitant]
     Route: 048
     Dates: end: 20050831

REACTIONS (1)
  - COMPLETED SUICIDE [None]
